FAERS Safety Report 11862289 (Version 3)
Quarter: 2016Q1

REPORT INFORMATION
  Report Type: Spontaneous
  Country: JP (occurrence: JP)
  Receive Date: 20151222
  Receipt Date: 20160229
  Transmission Date: 20160526
  Serious: Yes (Hospitalization)
  Sender: FDA-Public Use
  Company Number: JP-ROCHE-1681631

PATIENT
  Age: 91 Year
  Sex: Male

DRUGS (8)
  1. BLOPRESS [Concomitant]
     Active Substance: CANDESARTAN CILEXETIL
  2. HARNAL [Concomitant]
     Active Substance: TAMSULOSIN HYDROCHLORIDE
  3. LUCENTIS [Suspect]
     Active Substance: RANIBIZUMAB
     Route: 050
     Dates: start: 20151110
  4. SERMION [Concomitant]
     Active Substance: NICERGOLINE
  5. LUCENTIS [Suspect]
     Active Substance: RANIBIZUMAB
     Indication: RETINAL VEIN OCCLUSION
     Route: 050
     Dates: start: 20150630
  6. BAYASPIRIN [Concomitant]
     Active Substance: ASPIRIN
  7. CALBLOCK [Concomitant]
     Active Substance: AZELNIDIPINE
  8. DEPAS [Concomitant]
     Active Substance: ETIZOLAM

REACTIONS (1)
  - Cerebral infarction [Unknown]

NARRATIVE: CASE EVENT DATE: 20151210
